FAERS Safety Report 12473015 (Version 1)
Quarter: 2016Q2

REPORT INFORMATION
  Report Type: Spontaneous
  Country: IT (occurrence: IT)
  Receive Date: 20160616
  Receipt Date: 20160616
  Transmission Date: 20160815
  Serious: Yes (Other)
  Sender: FDA-Public Use
  Company Number: IT-BAYER-2016-113492

PATIENT
  Age: 79 Year
  Sex: Male

DRUGS (8)
  1. RADIUM-223 DICHLORIDE [Suspect]
     Active Substance: RADIUM RA-223 DICHLORIDE
     Indication: HORMONE-REFRACTORY PROSTATE CANCER
     Dosage: 50KBQ/KG ONCE (EVERY 28 DAYS)
     Route: 042
     Dates: start: 201312
  2. RADIUM-223 DICHLORIDE [Suspect]
     Active Substance: RADIUM RA-223 DICHLORIDE
     Indication: HORMONE-REFRACTORY PROSTATE CANCER
     Dosage: 50KBQ/KG ONCE (EVERY 28 DAYS)
     Route: 042
     Dates: start: 201309
  3. RADIUM-223 DICHLORIDE [Suspect]
     Active Substance: RADIUM RA-223 DICHLORIDE
     Indication: HORMONE-REFRACTORY PROSTATE CANCER
     Dosage: 50KBQ/KG ONCE (EVERY 28 DAYS)
     Route: 042
     Dates: start: 201403
  4. RADIUM-223 DICHLORIDE [Suspect]
     Active Substance: RADIUM RA-223 DICHLORIDE
     Indication: HORMONE-REFRACTORY PROSTATE CANCER
     Dosage: 50KBQ/KG ONCE (EVERY 28 DAYS)
     Route: 042
     Dates: start: 201311
  5. ACETAMINOPHEN. [Concomitant]
     Active Substance: ACETAMINOPHEN
     Dosage: 1 G, BID
  6. RADIUM-223 DICHLORIDE [Suspect]
     Active Substance: RADIUM RA-223 DICHLORIDE
     Indication: HORMONE-REFRACTORY PROSTATE CANCER
     Dosage: 50KBQ/KG ONCE (EVERY 28 DAYS)
     Route: 042
     Dates: start: 201401
  7. RADIUM-223 DICHLORIDE [Suspect]
     Active Substance: RADIUM RA-223 DICHLORIDE
     Indication: METASTASES TO BONE
     Dosage: 50KBQ/KG ONCE (EVERY 28 DAYS)
     Route: 042
     Dates: start: 201310
  8. ABIRATERONE [Concomitant]
     Active Substance: ABIRATERONE
     Dosage: UNK
     Dates: start: 201408, end: 201506

REACTIONS (4)
  - Prostatic specific antigen increased [None]
  - Diarrhoea [None]
  - Pain [None]
  - Drug ineffective [None]

NARRATIVE: CASE EVENT DATE: 201309
